FAERS Safety Report 6925832-7 (Version None)
Quarter: 2010Q3

REPORT INFORMATION
  Report Type: 
  Country: None (occurrence: None)
  Receive Date: 20100813
  Receipt Date: 20100813
  Transmission Date: 20110219
  Serious: Yes (Hospitalization)
  Sender: FDA-Public Use
  Company Number: None

PATIENT
  Sex: Male
  Weight: 37 kg

DRUGS (8)
  1. CYCLOPHOSPHAMIDE [Suspect]
     Dosage: 1060 MG
  2. CYTARABINE [Suspect]
     Dosage: 160 MG
  3. DEXAMETHASONE [Suspect]
     Dosage: 140 MG
  4. DOXORUBICIN HYDROCHLORIDE [Suspect]
     Dosage: 78 MG
  5. METHOTREXATE [Suspect]
     Dosage: 30 MG
  6. PEG-L- ASPARAGINASE (PEGASPARGASE, ONCOSPAR) [Suspect]
     Dosage: 2650 IU
  7. THIOGUANINE [Suspect]
     Dosage: 450 MG
  8. VINCRISTINE SULFATE [Suspect]
     Dosage: 4.8 MG

REACTIONS (7)
  - ASCITES [None]
  - HEPATIC FUNCTION ABNORMAL [None]
  - MALNUTRITION [None]
  - NEUTROPENIA [None]
  - PLEURAL EFFUSION [None]
  - PYREXIA [None]
  - RESPIRATORY DISTRESS [None]
